FAERS Safety Report 13415258 (Version 1)
Quarter: 2017Q2

REPORT INFORMATION
  Report Type: Spontaneous
  Country: PL (occurrence: PL)
  Receive Date: 20170407
  Receipt Date: 20170407
  Transmission Date: 20170830
  Serious: Yes (Hospitalization)
  Sender: FDA-Public Use
  Company Number: PL-TEVA-755405ACC

PATIENT
  Age: 66 Year
  Sex: Male
  Weight: 77 kg

DRUGS (2)
  1. ETOPOSIDE. [Suspect]
     Active Substance: ETOPOSIDE
     Indication: LUNG CARCINOMA CELL TYPE UNSPECIFIED STAGE 0
     Route: 042
     Dates: start: 20160705, end: 20160707
  2. CARBOPLATIN. [Suspect]
     Active Substance: CARBOPLATIN
     Indication: LUNG CARCINOMA CELL TYPE UNSPECIFIED STAGE 0
     Route: 042
     Dates: start: 20160705, end: 20160705

REACTIONS (2)
  - Neutropenia [Recovered/Resolved]
  - Thrombocytopenia [Recovered/Resolved]

NARRATIVE: CASE EVENT DATE: 20160711
